FAERS Safety Report 25860305 (Version 1)
Quarter: 2025Q3

REPORT INFORMATION
  Report Type: Report from Study
  Country: US (occurrence: US)
  Receive Date: 20250929
  Receipt Date: 20250929
  Transmission Date: 20251020
  Serious: Yes (Hospitalization)
  Sender: GILEAD
  Company Number: US-GILEAD-2025-0729837

PATIENT
  Age: 52 Year
  Sex: Female

DRUGS (2)
  1. AZTREONAM LYSINE [Suspect]
     Active Substance: AZTREONAM LYSINE
     Indication: Chronic obstructive pulmonary disease
     Dosage: 75 MG, TID (75 MG : INHALE 1 VIAL VIA NEBULIZER THREE TIMES DAILY FOR 28 DAYS ON, THEN 28 DAYS OFF)
     Route: 055
     Dates: start: 20241221
  2. AZTREONAM LYSINE [Suspect]
     Active Substance: AZTREONAM LYSINE
     Indication: Cystic fibrosis

REACTIONS (3)
  - Oxygen saturation decreased [Unknown]
  - Pain [Unknown]
  - Product dose omission issue [Unknown]
